FAERS Safety Report 9457224 (Version 2)
Quarter: 2013Q3

REPORT INFORMATION
  Report Type: Spontaneous
  Country: US (occurrence: US)
  Receive Date: 20130814
  Receipt Date: 20130826
  Transmission Date: 20140515
  Serious: Yes (Other)
  Sender: FDA-Public Use
  Company Number: US-ROCHE-1261594

PATIENT
  Age: 60 Year
  Sex: Female
  Weight: 59.02 kg

DRUGS (4)
  1. AVASTIN [Suspect]
     Indication: COLORECTAL CANCER
     Route: 065
     Dates: end: 201110
  2. AVASTIN [Suspect]
     Route: 042
     Dates: start: 20111009, end: 20120328
  3. AVASTIN [Suspect]
     Route: 042
     Dates: start: 20120418, end: 20130213
  4. XELODA [Suspect]
     Indication: COLON CANCER
     Route: 048
     Dates: start: 20120418, end: 20130213

REACTIONS (2)
  - Portal hypertension [Recovering/Resolving]
  - Varices oesophageal [Recovering/Resolving]
